FAERS Safety Report 8337210-7 (Version None)
Quarter: 2012Q2

REPORT INFORMATION
  Report Type: 
  Country: None (occurrence: None)
  Receive Date: 20120504
  Receipt Date: 20120502
  Transmission Date: 20120825
  Serious: Yes (Other)
  Sender: FDA-Public Use
  Company Number: ES-PFIZER INC-2012052106

PATIENT
  Age: 67 Year
  Sex: Male

DRUGS (2)
  1. TORISEL [Suspect]
     Dosage: 75 MG, WEEKLY
     Route: 042
     Dates: start: 20110609, end: 20110630
  2. TORISEL [Suspect]
     Indication: RENAL CELL CARCINOMA
     Dosage: 175 MG, 3X/WEEK
     Route: 042
     Dates: start: 20110310, end: 20110331

REACTIONS (2)
  - DYSPNOEA [None]
  - PULMONARY OEDEMA [None]
